FAERS Safety Report 16389494 (Version 1)
Quarter: 2019Q3

REPORT INFORMATION
  Report Type: Spontaneous
  Country: US (occurrence: US)
  Receive Date: 20190603
  Receipt Date: 20190603
  Transmission Date: 20191004
  Serious: Yes (Other)
  Sender: FDA-Public Use
  Company Number: None

PATIENT
  Age: 73 Year
  Sex: Female
  Weight: 85.5 kg

DRUGS (1)
  1. FARYDAK [Suspect]
     Active Substance: PANOBINOSTAT
     Indication: PLASMA CELL MYELOMA
     Dosage: ?          OTHER FREQUENCY:3 TIMES A WEEK;?
     Route: 048
     Dates: start: 20190503, end: 20190603

REACTIONS (1)
  - Disease progression [None]

NARRATIVE: CASE EVENT DATE: 20190603
